FAERS Safety Report 8375763-3 (Version None)
Quarter: 2012Q2

REPORT INFORMATION
  Report Type: 
  Country: None (occurrence: None)
  Receive Date: 20120518
  Receipt Date: 20120518
  Transmission Date: 20120825
  Serious: Yes (Other)
  Sender: FDA-Public Use
  Company Number: None

PATIENT
  Sex: Female
  Weight: 60 kg

DRUGS (2)
  1. FOSAMAX [Suspect]
     Indication: OSTEOPENIA
     Dosage: ONE TAB ONCE A WEEK ORAL
     Route: 048
     Dates: start: 20050125, end: 20080928
  2. ACTONEL [Suspect]
     Indication: OSTEOPENIA
     Dosage: ONE TAB ONCE A WEEK ORAL
     Route: 048
     Dates: start: 20040511

REACTIONS (1)
  - OSTEONECROSIS OF JAW [None]
